FAERS Safety Report 12959024 (Version 1)
Quarter: 2016Q4

REPORT INFORMATION
  Report Type: Spontaneous
  Country: US (occurrence: US)
  Receive Date: 20161117
  Receipt Date: 20161117
  Transmission Date: 20170207
  Serious: Yes (Death, Hospitalization)
  Sender: FDA-Public Use
  Company Number: None

PATIENT
  Age: 53 Year
  Sex: Female

DRUGS (7)
  1. RIVAROXABAN [Suspect]
     Active Substance: RIVAROXABAN
     Indication: ATRIAL FIBRILLATION
     Route: 048
     Dates: end: 20160827
  2. LEVOTHYROXINE. [Concomitant]
     Active Substance: LEVOTHYROXINE
  3. SPIRONOLACTONE. [Concomitant]
     Active Substance: SPIRONOLACTONE
  4. CARVEDILOL. [Concomitant]
     Active Substance: CARVEDILOL
  5. MULTIVITAMIN [Concomitant]
     Active Substance: VITAMINS
  6. RAMIPRIL. [Concomitant]
     Active Substance: RAMIPRIL
  7. PENICILLIN [Concomitant]
     Active Substance: PENICILLIN

REACTIONS (1)
  - Shock haemorrhagic [None]

NARRATIVE: CASE EVENT DATE: 20160828
